FAERS Safety Report 8556303-2 (Version None)
Quarter: 2012Q3

REPORT INFORMATION
  Report Type: 
  Country: None (occurrence: None)
  Receive Date: 20120801
  Receipt Date: 20120727
  Transmission Date: 20120928
  Serious: Yes (Other)
  Sender: FDA-Public Use
  Company Number: FR-PFIZER INC-2012170100

PATIENT
  Age: 67 Year
  Sex: Female
  Weight: 72 kg

DRUGS (2)
  1. CRIZOTINIB [Suspect]
     Indication: LUNG NEOPLASM MALIGNANT
     Dosage: 250 MG, 2X/DAY
     Route: 048
     Dates: start: 20120613, end: 20120711
  2. PARACETAMOL [Concomitant]
     Indication: PAIN
     Dosage: 1000 (UNITS NOT PROVIDED), 1X/DAY
     Route: 048

REACTIONS (1)
  - CYTOLYTIC HEPATITIS [None]
